FAERS Safety Report 16330293 (Version 1)
Quarter: 2019Q2

REPORT INFORMATION
  Report Type: Spontaneous
  Country: US (occurrence: US)
  Receive Date: 20190520
  Receipt Date: 20190520
  Transmission Date: 20190711
  Serious: No
  Sender: FDA-Public Use
  Company Number: US-TEVA-2019-US-1052514

PATIENT
  Age: 51 Year
  Sex: Female
  Weight: 74 kg

DRUGS (7)
  1. COCONUT OIL [Concomitant]
     Active Substance: COCONUT OIL
  2. OMEGA 3 [Concomitant]
     Active Substance: OMEGA-3 FATTY ACIDS
  3. AJOVY [Suspect]
     Active Substance: FREMANEZUMAB-VFRM
     Route: 065
     Dates: start: 20181102
  4. AMOXICILLIN. [Concomitant]
     Active Substance: AMOXICILLIN
  5. ALLEGRA [Concomitant]
     Active Substance: FEXOFENADINE HYDROCHLORIDE
  6. OXYCODONE [Concomitant]
     Active Substance: OXYCODONE
  7. RED YEAST RICE [Concomitant]
     Active Substance: DIETARY SUPPLEMENT

REACTIONS (6)
  - Urticaria [Unknown]
  - Pruritus [Unknown]
  - Product dose omission [Unknown]
  - Rash [Unknown]
  - Thermal burn [Unknown]
  - Hypoaesthesia [Unknown]
